FAERS Safety Report 7415116-5 (Version None)
Quarter: 2011Q2

REPORT INFORMATION
  Report Type: 
  Country: None (occurrence: None)
  Receive Date: 20110414
  Receipt Date: 20110331
  Transmission Date: 20111010
  Serious: Yes (Other)
  Sender: FDA-Public Use
  Company Number: PHEH2009US00593

PATIENT
  Sex: Male

DRUGS (22)
  1. LUPRON [Concomitant]
  2. LEVAQUIN [Concomitant]
  3. PRILOSEC [Concomitant]
  4. AMOXIL ^AYERST LAB^ [Concomitant]
     Dosage: UNK
  5. LISINOPRIL [Concomitant]
  6. PREDNISONE [Concomitant]
  7. CYMBALTA [Concomitant]
  8. MEGACE [Concomitant]
  9. ZANTAC [Concomitant]
  10. CASODEX [Concomitant]
  11. MEGESTROL ACETATE [Concomitant]
  12. CYMBALTA [Concomitant]
  13. ARTIFICIAL TEARS [Concomitant]
  14. ZOMETA [Suspect]
     Indication: PROSTATE CANCER METASTATIC
     Dosage: 4 MG MONTHLY
     Route: 042
     Dates: start: 20040101, end: 20041201
  15. ASPIRIN [Concomitant]
  16. ZOLOFT [Concomitant]
  17. DETROL [Concomitant]
  18. OXYCONTIN [Concomitant]
  19. PERCOCET [Concomitant]
  20. PROVENTIL [Concomitant]
  21. DEXAMETHASONE [Concomitant]
  22. ZYRTEC [Concomitant]

REACTIONS (48)
  - TOOTHACHE [None]
  - INTERVERTEBRAL DISC PROTRUSION [None]
  - OSTEOSCLEROSIS [None]
  - LOSS OF CONSCIOUSNESS [None]
  - ANXIETY [None]
  - DIVERTICULITIS [None]
  - BONE LESION [None]
  - COLONIC POLYP [None]
  - RECTAL POLYP [None]
  - BONE DISORDER [None]
  - ORAL INFECTION [None]
  - ABDOMINAL PAIN UPPER [None]
  - HIATUS HERNIA [None]
  - PAIN IN JAW [None]
  - TOOTH DISORDER [None]
  - CHOLELITHIASIS [None]
  - SINUS CONGESTION [None]
  - RHINITIS ALLERGIC [None]
  - MAJOR DEPRESSION [None]
  - TRISMUS [None]
  - SPEECH DISORDER [None]
  - NAUSEA [None]
  - CHOLECYSTITIS CHRONIC [None]
  - MALAISE [None]
  - ACQUIRED OESOPHAGEAL WEB [None]
  - CHILLS [None]
  - DRUG ABUSE [None]
  - DRY MOUTH [None]
  - FAT NECROSIS [None]
  - PERIODONTAL DISEASE [None]
  - TOOTH FRACTURE [None]
  - PAIN [None]
  - BACK PAIN [None]
  - EYE MOVEMENT DISORDER [None]
  - DIZZINESS [None]
  - SINUSITIS [None]
  - HYPOKALAEMIA [None]
  - RESTLESS LEGS SYNDROME [None]
  - GINGIVAL DISORDER [None]
  - OEDEMA [None]
  - DIARRHOEA [None]
  - VOMITING [None]
  - COLON ADENOMA [None]
  - CONVULSION [None]
  - IMPAIRED HEALING [None]
  - PROSTATIC SPECIFIC ANTIGEN INCREASED [None]
  - PYREXIA [None]
  - GASTROOESOPHAGEAL REFLUX DISEASE [None]
